FAERS Safety Report 8515042-4 (Version None)
Quarter: 2012Q3

REPORT INFORMATION
  Report Type: 
  Country: None (occurrence: None)
  Receive Date: 20120717
  Receipt Date: 20120702
  Transmission Date: 20120928
  Serious: Yes (Other)
  Sender: FDA-Public Use
  Company Number: AU-ARROW-2012-11795

PATIENT
  Age: 58 Year
  Sex: Female

DRUGS (2)
  1. METOPROLOL TARTRATE [Suspect]
     Dosage: 25 MG, DAILY
     Route: 065
     Dates: start: 20100201
  2. METOPROLOL TARTRATE [Suspect]
     Indication: SUPRAVENTRICULAR TACHYCARDIA
     Dosage: 25 MG, BID
     Route: 065
     Dates: end: 20091201

REACTIONS (1)
  - NAIL PSORIASIS [None]
